FAERS Safety Report 12277892 (Version 1)
Quarter: 2016Q2

REPORT INFORMATION
  Report Type: Spontaneous
  Country: US (occurrence: US)
  Receive Date: 20160418
  Receipt Date: 20160418
  Transmission Date: 20160815
  Serious: Yes (Death, Other)
  Sender: FDA-Public Use
  Company Number: US-ELI_LILLY_AND_COMPANY-US201604003991

PATIENT
  Age: 45 Year
  Sex: Female

DRUGS (5)
  1. TRANYLCYPROMINE [Interacting]
     Active Substance: TRANYLCYPROMINE
     Indication: PRODUCT USED FOR UNKNOWN INDICATION
     Dosage: 30 MG, QD
     Route: 065
  2. FLUOXETINE HYDROCHLORIDE. [Suspect]
     Active Substance: FLUOXETINE HYDROCHLORIDE
     Indication: DEPRESSION
     Dosage: 20 MG, QD
     Route: 065
  3. THIORIDAZINE [Interacting]
     Active Substance: THIORIDAZINE
     Indication: PRODUCT USED FOR UNKNOWN INDICATION
     Dosage: 50 MG, UNKNOWN
     Route: 065
  4. FLUOXETINE HYDROCHLORIDE. [Interacting]
     Active Substance: FLUOXETINE HYDROCHLORIDE
     Dosage: 40 MG, QD
     Route: 065
  5. TRYPTOPHAN, L- [Interacting]
     Active Substance: TRYPTOPHAN
     Indication: PRODUCT USED FOR UNKNOWN INDICATION
     Dosage: 500 MG, UNKNOWN
     Route: 065

REACTIONS (8)
  - Headache [Unknown]
  - Neuroleptic malignant syndrome [Unknown]
  - Drug interaction [Unknown]
  - Hypotension [Unknown]
  - Seizure [Unknown]
  - Tachycardia [Unknown]
  - Death [Fatal]
  - Insomnia [Unknown]
